FAERS Safety Report 15467675 (Version 7)
Quarter: 2019Q3

REPORT INFORMATION
  Report Type: Spontaneous
  Country: US (occurrence: US)
  Receive Date: 20181005
  Receipt Date: 20190802
  Transmission Date: 20191004
  Serious: Yes (Death, Hospitalization)
  Sender: FDA-Public Use
  Company Number: US-PFIZER INC-2018373342

PATIENT
  Age: 66 Year
  Sex: Female
  Weight: 75.3 kg

DRUGS (2)
  1. REVATIO [Suspect]
     Active Substance: SILDENAFIL CITRATE
     Indication: VASODILATATION
     Dosage: 30 MG, THRICE DAILY (1.5 PILLS THRICE DAILY OR 4.5 PILLS DAILY)
     Route: 048
     Dates: start: 201807
  2. REVATIO [Suspect]
     Active Substance: SILDENAFIL CITRATE
     Indication: PULMONARY HYPERTENSION
     Dosage: 20 MG, THRICE DAILY
     Route: 048
     Dates: start: 2014

REACTIONS (6)
  - Product use issue [Unknown]
  - Malaise [Unknown]
  - Cardiac failure [Fatal]
  - Interstitial lung disease [Fatal]
  - Cardiac disorder [Not Recovered/Not Resolved]
  - Cough [Unknown]

NARRATIVE: CASE EVENT DATE: 201807
